FAERS Safety Report 23552992 (Version 2)
Quarter: 2024Q1

REPORT INFORMATION
  Report Type: Spontaneous
  Country: KR (occurrence: KR)
  Receive Date: 20240222
  Receipt Date: 20240314
  Transmission Date: 20240410
  Serious: No
  Sender: FDA-Public Use
  Company Number: KR-PFIZER INC-PV202400016789

PATIENT
  Age: 7 Year
  Sex: Male

DRUGS (1)
  1. GENOTROPIN [Suspect]
     Active Substance: SOMATROPIN
     Indication: Congenital growth hormone deficiency
     Dosage: 4 IU, 6 TIMES WEEKLY
     Dates: start: 20210902

REACTIONS (2)
  - Poor quality device used [Unknown]
  - Device leakage [Unknown]
